FAERS Safety Report 13698183 (Version 3)
Quarter: 2017Q4

REPORT INFORMATION
  Report Type: Spontaneous
  Country: JP (occurrence: JP)
  Receive Date: 20170628
  Receipt Date: 20171110
  Transmission Date: 20180320
  Serious: Yes (Other)
  Sender: FDA-Public Use
  Company Number: JP-PFIZER INC-2017277474

PATIENT
  Age: 62 Year
  Sex: Male
  Weight: 66 kg

DRUGS (2)
  1. LYRICA [Suspect]
     Active Substance: PREGABALIN
     Indication: BACK PAIN
  2. LYRICA [Suspect]
     Active Substance: PREGABALIN
     Indication: SCIATICA
     Dosage: 75 MG, 2X/DAY
     Dates: start: 20170517, end: 20170521

REACTIONS (4)
  - Cystoid macular oedema [Recovered/Resolved]
  - Abdominal distension [Unknown]
  - Somnolence [Unknown]
  - Visual acuity reduced [Recovered/Resolved]

NARRATIVE: CASE EVENT DATE: 201705
